FAERS Safety Report 11225407 (Version 1)
Quarter: 2015Q2

REPORT INFORMATION
  Report Type: Spontaneous
  Country: US (occurrence: None)
  Receive Date: 20150626
  Receipt Date: 20150626
  Transmission Date: 20150821
  Serious: Yes (Other)
  Sender: FDA-Public Use
  Company Number: None

PATIENT
  Age: 28 Year
  Sex: Female
  Weight: 63.5 kg

DRUGS (6)
  1. GABAPENTIN. [Concomitant]
     Active Substance: GABAPENTIN
  2. FENTANYL FENTANYL [Suspect]
     Active Substance: FENTANYL
     Indication: ARTHRALGIA
     Dosage: EVERY 72 HOURS APPLIED TO A SURFACE, USUALLY THE SKIN
     Route: 061
     Dates: start: 20150617, end: 20150619
  3. FENTANYL FENTANYL [Suspect]
     Active Substance: FENTANYL
     Indication: BACK PAIN
     Dosage: EVERY 72 HOURS APPLIED TO A SURFACE, USUALLY THE SKIN
     Route: 061
     Dates: start: 20150617, end: 20150619
  4. FENTANYL FENTANYL [Suspect]
     Active Substance: FENTANYL
     Indication: PAIN IN EXTREMITY
     Dosage: EVERY 72 HOURS APPLIED TO A SURFACE, USUALLY THE SKIN
     Route: 061
     Dates: start: 20150617, end: 20150619
  5. MORPHINE [Concomitant]
     Active Substance: MORPHINE
  6. CELEXA [Concomitant]
     Active Substance: CITALOPRAM HYDROBROMIDE

REACTIONS (7)
  - Nausea [None]
  - Diarrhoea [None]
  - Hyperhidrosis [None]
  - Abdominal pain [None]
  - Headache [None]
  - Abdominal discomfort [None]
  - Feeling of body temperature change [None]

NARRATIVE: CASE EVENT DATE: 20150619
